FAERS Safety Report 6093154-5 (Version None)
Quarter: 2009Q1

REPORT INFORMATION
  Report Type: 
  Country: None (occurrence: None)
  Receive Date: 20090226
  Receipt Date: 20090217
  Transmission Date: 20090719
  Serious: Yes (Death)
  Sender: FDA-Public Use
  Company Number: JP-PFIZER INC-2009170814

PATIENT

DRUGS (1)
  1. GENOTROPIN [Suspect]
     Dosage: 1.4 MG, 1.4 MG, 1.2 MG, THREE DAYS CYCLE
     Route: 058
     Dates: start: 20060703, end: 20090215

REACTIONS (1)
  - DEATH [None]
